FAERS Safety Report 8976400 (Version 1)
Quarter: 2012Q4

REPORT INFORMATION
  Report Type: 
  Country: US (occurrence: US)
  Receive Date: 20121220
  Receipt Date: 20121220
  Transmission Date: 20130627
  Serious: Yes (Hospitalization)
  Sender: FDA-Public Use
  Company Number: US-PFIZER INC-2012318050

PATIENT
  Age: 52 Year
  Sex: Female

DRUGS (2)
  1. SUMATRIPTAN SUCCINATE [Suspect]
     Indication: MIGRAINE HEADACHE
     Dosage: 50 mg, UNK
  2. ESCITALOPRAM [Concomitant]
     Indication: DEPRESSION
     Dosage: 10 mg, Daily

REACTIONS (1)
  - Splenic infarction [Recovered/Resolved]
